FAERS Safety Report 9957988 (Version 2)
Quarter: 2014Q1

REPORT INFORMATION
  Report Type: Report from Study
  Country: US (occurrence: US)
  Receive Date: 20140304
  Receipt Date: 20140304
  Transmission Date: 20141002
  Serious: No
  Sender: FDA-Public Use
  Company Number: US-ABBVIE-13P-163-1090801-00

PATIENT
  Age: 28 Year
  Sex: Female

DRUGS (7)
  1. HUMIRA [Suspect]
     Indication: HIDRADENITIS
     Route: 058
     Dates: start: 20130325, end: 20130325
  2. HUMIRA [Suspect]
     Route: 058
     Dates: start: 20130401
  3. MIRENA [Concomitant]
     Indication: CONTRACEPTION
  4. SPIRONOLACTONE [Concomitant]
     Indication: ACNE
  5. CALCIUM [Concomitant]
     Indication: PRODUCT USED FOR UNKNOWN INDICATION
  6. VITAMIN D [Concomitant]
     Indication: PRODUCT USED FOR UNKNOWN INDICATION
  7. B12 [Concomitant]
     Indication: PRODUCT USED FOR UNKNOWN INDICATION

REACTIONS (14)
  - Gait disturbance [Recovering/Resolving]
  - Injection site erythema [Recovering/Resolving]
  - Urticaria [Recovering/Resolving]
  - Injection site swelling [Recovering/Resolving]
  - Urticaria [Recovering/Resolving]
  - Injection site papule [Recovering/Resolving]
  - Injection site oedema [Recovering/Resolving]
  - Injection site erythema [Recovering/Resolving]
  - Pain [Recovering/Resolving]
  - Pain in extremity [Recovering/Resolving]
  - Pruritus [Recovering/Resolving]
  - Injection site vesicles [Unknown]
  - Incorrect dose administered [Recovered/Resolved]
  - Off label use [Unknown]
